FAERS Safety Report 11722196 (Version 1)
Quarter: 2015Q4

REPORT INFORMATION
  Report Type: Spontaneous
  Country: US (occurrence: None)
  Receive Date: 20151110
  Receipt Date: 20151110
  Transmission Date: 20160304
  Serious: Yes (Hospitalization)
  Sender: FDA-Public Use
  Company Number: None

PATIENT
  Age: 32 Year
  Sex: Male
  Weight: 73.3 kg

DRUGS (9)
  1. INVANZ [Suspect]
     Active Substance: ERTAPENEM SODIUM
     Indication: OSTEOMYELITIS
     Route: 042
     Dates: start: 20151030, end: 20151107
  2. INVANZ [Suspect]
     Active Substance: ERTAPENEM SODIUM
     Indication: DECUBITUS ULCER
     Route: 042
     Dates: start: 20151030, end: 20151107
  3. SODIUM BICARBONATE. [Concomitant]
     Active Substance: SODIUM BICARBONATE
  4. LOMOTIL [Concomitant]
     Active Substance: ATROPINE SULFATE\DIPHENOXYLATE HYDROCHLORIDE
  5. NEURONTIN [Concomitant]
     Active Substance: GABAPENTIN
  6. CALCIUM CARBONATE. [Concomitant]
     Active Substance: CALCIUM CARBONATE
  7. LEVAQUIN [Concomitant]
     Active Substance: LEVOFLOXACIN
  8. MAGOX [Concomitant]
  9. CUBICIN [Concomitant]
     Active Substance: DAPTOMYCIN

REACTIONS (2)
  - Seizure [None]
  - Escherichia urinary tract infection [None]

NARRATIVE: CASE EVENT DATE: 20151107
